FAERS Safety Report 19039334 (Version 1)
Quarter: 2021Q1

REPORT INFORMATION
  Report Type: Spontaneous
  Country: IN (occurrence: IN)
  Receive Date: 20210322
  Receipt Date: 20210322
  Transmission Date: 20210420
  Serious: Yes (Other)
  Sender: FDA-Public Use
  Company Number: IN-GLAXOSMITHKLINE-IN2021GSK061250

PATIENT
  Age: 45 Year
  Sex: Male

DRUGS (3)
  1. EFAVIRENZ. [Suspect]
     Active Substance: EFAVIRENZ
     Indication: ANTIRETROVIRAL THERAPY
     Dosage: UNK
  2. LAMIVUDINE HIV [Suspect]
     Active Substance: LAMIVUDINE
     Indication: ANTIRETROVIRAL THERAPY
     Dosage: UNK
  3. TENOFOVIR DISOPROXIL FUMARATE. [Suspect]
     Active Substance: TENOFOVIR DISOPROXIL FUMARATE
     Indication: ANTIRETROVIRAL THERAPY
     Dosage: UNK

REACTIONS (10)
  - Non-Hodgkin^s lymphoma [Unknown]
  - Oral pain [Unknown]
  - Weight decreased [Unknown]
  - B-cell lymphoma [Unknown]
  - Oral disorder [Unknown]
  - Pyrexia [Unknown]
  - Oral discomfort [Unknown]
  - Mouth ulceration [Unknown]
  - Virologic failure [Unknown]
  - Drug ineffective [Unknown]
